FAERS Safety Report 7967726-4 (Version None)
Quarter: 2011Q4

REPORT INFORMATION
  Report Type: 
  Country: None (occurrence: None)
  Receive Date: 20111209
  Receipt Date: 20111209
  Transmission Date: 20120403
  Serious: No
  Sender: FDA-Public Use
  Company Number: None

PATIENT
  Sex: Female

DRUGS (1)
  1. ACTEMRA [Suspect]
     Indication: RHEUMATOID ARTHRITIS
     Dosage: 360MG
     Route: 042
     Dates: start: 20110501, end: 20111130

REACTIONS (7)
  - PAIN [None]
  - APATHY [None]
  - FEELING ABNORMAL [None]
  - STARING [None]
  - DRUG INEFFECTIVE [None]
  - FATIGUE [None]
  - WEIGHT INCREASED [None]
